FAERS Safety Report 5912738-5 (Version None)
Quarter: 2008Q4

REPORT INFORMATION
  Report Type: 
  Country: None (occurrence: None)
  Receive Date: 20081008
  Receipt Date: 20080926
  Transmission Date: 20090506
  Serious: Yes (Other)
  Sender: FDA-Public Use
  Company Number: US-ELI_LILLY_AND_COMPANY-US200810000072

PATIENT
  Sex: Female

DRUGS (24)
  1. CYMBALTA [Suspect]
     Indication: PAIN
     Dosage: 30 MG, UNK
     Dates: start: 20080428, end: 20080501
  2. CYMBALTA [Suspect]
     Dosage: 60 MG, UNK
     Dates: start: 20080501, end: 20080901
  3. WARFARIN SODIUM [Concomitant]
     Dosage: 5 MG, 4/W
  4. WARFARIN SODIUM [Concomitant]
     Dosage: 4 MG, 3/W
  5. PANTOPRAZOLE SODIUM [Concomitant]
     Dosage: 40 MG, UNK
  6. METOCLOPRAMIDE [Concomitant]
     Dosage: 10 MG, 3/D
  7. ACYCLOVIR SODIUM [Concomitant]
     Dosage: 200 MG, 2/D
  8. DILANTIN [Concomitant]
     Dosage: 300 MG, EACH EVENING
  9. ZETIA [Concomitant]
     Dosage: 10 MG, EACH EVENING
  10. EFFEXOR [Concomitant]
     Dosage: 75 MG, EACH EVENING
  11. BONIVA [Concomitant]
     Dosage: 150 MG, MONTHLY (1/M)
  12. CLARITIN-D [Concomitant]
     Dosage: 1 D/F, QOD
  13. MULTI-VITAMIN [Concomitant]
     Dosage: 1 D/F, EACH MORNING
  14. CALCIUM CARBONATE + VITAMIN D [Concomitant]
     Dosage: 500 MG, EACH MORNING
  15. ZINC [Concomitant]
     Dosage: 50 MG, EACH MORNING
  16. DOCUSATE SODIUM [Concomitant]
     Dosage: 100 MG, EACH MORNING
  17. ASPIRIN [Concomitant]
     Dosage: 81 MG, EACH MORNING
  18. TYLENOL (CAPLET) [Concomitant]
     Dosage: 1 D/F, EACH EVENING
  19. TYLENOL                                 /SCH/ [Concomitant]
     Dosage: 500 MG, EACH EVENING
  20. LORAZEPAM [Concomitant]
     Dosage: 0.5 MG, AS NEEDED
  21. SYSTANE                            /02034401/ [Concomitant]
     Dosage: 1 GTT, EACH MORNING
     Route: 047
  22. FLAREX [Concomitant]
     Dosage: 1 GTT, EACH MORNING
     Route: 047
  23. BETOPTIC [Concomitant]
     Dosage: 1 GTT, 2/D
     Route: 047
  24. TRAZODONE HCL [Concomitant]
     Dosage: 0.5 D/F, EACH EVENING

REACTIONS (2)
  - GASTROINTESTINAL HAEMORRHAGE [None]
  - LIVER FUNCTION TEST ABNORMAL [None]
